FAERS Safety Report 10216738 (Version 2)
Quarter: 2015Q1

REPORT INFORMATION
  Report Type: Spontaneous
  Country: US (occurrence: US)
  Receive Date: 20140604
  Receipt Date: 20150102
  Transmission Date: 20150720
  Serious: Yes (Hospitalization, Other)
  Sender: FDA-Public Use
  Company Number: US-PFIZER INC-2014149006

PATIENT
  Age: 43 Year
  Sex: Male

DRUGS (2)
  1. DEPO-TESTOSTERONE [Suspect]
     Active Substance: TESTOSTERONE CYPIONATE
     Indication: HORMONE REPLACEMENT THERAPY
     Dosage: 200 MG, MONTHLY
     Dates: start: 2011, end: 2013
  2. DEPO-TESTOSTERONE [Suspect]
     Active Substance: TESTOSTERONE CYPIONATE
     Indication: FATIGUE

REACTIONS (6)
  - Overweight [Not Recovered/Not Resolved]
  - Anxiety [Unknown]
  - Tachycardia [Unknown]
  - Hypertension [Unknown]
  - Impaired healing [Not Recovered/Not Resolved]
  - Cyst [Not Recovered/Not Resolved]
